FAERS Safety Report 9880603 (Version 1)
Quarter: 2014Q1

REPORT INFORMATION
  Report Type: Report from Study
  Country: DE (occurrence: DE)
  Receive Date: 20140207
  Receipt Date: 20140207
  Transmission Date: 20141002
  Serious: Yes (Hospitalization)
  Sender: FDA-Public Use
  Company Number: DE-ROCHE-1344145

PATIENT
  Age: 85 Year
  Sex: Female

DRUGS (4)
  1. RITUXIMAB [Suspect]
     Indication: RHEUMATOID ARTHRITIS
     Route: 065
     Dates: start: 20110224
  2. RITUXIMAB [Suspect]
     Route: 065
     Dates: start: 20120102
  3. RITUXIMAB [Suspect]
     Route: 065
     Dates: start: 20120906
  4. HYDROXYCHLOROQUINE [Concomitant]
     Indication: RHEUMATOID ARTHRITIS
     Route: 065
     Dates: start: 201102, end: 201208

REACTIONS (3)
  - Glaucoma [Unknown]
  - Fall [Unknown]
  - Haematoma [Recovered/Resolved]
